FAERS Safety Report 7244345-9 (Version None)
Quarter: 2011Q1

REPORT INFORMATION
  Report Type: 
  Country: None (occurrence: None)
  Receive Date: 20110125
  Receipt Date: 20110118
  Transmission Date: 20110831
  Serious: Yes (Other)
  Sender: FDA-Public Use
  Company Number: IE-JNJFOC-20101204967

PATIENT
  Age: 89 Year
  Sex: Male

DRUGS (1)
  1. INVEGA [Suspect]
     Indication: DEMENTIA ALZHEIMER'S TYPE
     Route: 048

REACTIONS (3)
  - INDIFFERENCE [None]
  - SEDATION [None]
  - IMMOBILE [None]
